FAERS Safety Report 7152408-1 (Version None)
Quarter: 2010Q4

REPORT INFORMATION
  Report Type: 
  Country: None (occurrence: None)
  Receive Date: 20101124
  Receipt Date: 20101110
  Transmission Date: 20110411
  Serious: Yes (Hospitalization)
  Sender: FDA-Public Use
  Company Number: DSA_44194_2010

PATIENT
  Age: 78 Year
  Sex: Female

DRUGS (7)
  1. ENALAPRIL MALEATE [Suspect]
     Indication: HYPERTENSION
     Dosage: (20 MG QD ORAL)
     Route: 048
     Dates: start: 20090101, end: 20100818
  2. DICLOFENAC SODIUM [Suspect]
     Indication: PERIARTHRITIS
     Dosage: (100 MG QD ORAL)
     Route: 048
     Dates: start: 20100801, end: 20100818
  3. FUROSEMIDE SODIUM (FUROSEMIDE SODIUM) 25 MG [Suspect]
     Indication: HYPERTENSION
     Dosage: (25 MG BID ORAL)
     Route: 048
     Dates: start: 20090101, end: 20100818
  4. SPIRONOLACTONE [Suspect]
     Indication: HYPERTENSION
     Dosage: (25 MG QD ORAL)
     Route: 048
     Dates: start: 20090101, end: 20100818
  5. ALLOPURINOL [Suspect]
     Indication: HYPERURICAEMIA
     Dosage: (100 MG QD ORAL)
     Route: 048
     Dates: start: 20090101, end: 20100818
  6. EUTIROX [Concomitant]
  7. COUMADIN [Concomitant]

REACTIONS (9)
  - BLOOD GLUCOSE INCREASED [None]
  - BLOOD SODIUM DECREASED [None]
  - C-REACTIVE PROTEIN INCREASED [None]
  - ELECTROLYTE IMBALANCE [None]
  - HAEMOGLOBIN DECREASED [None]
  - INTERNATIONAL NORMALISED RATIO INCREASED [None]
  - PROTHROMBIN TIME PROLONGED [None]
  - RENAL FAILURE ACUTE [None]
  - WHITE BLOOD CELL COUNT INCREASED [None]
